FAERS Safety Report 8165971-9 (Version None)
Quarter: 2012Q1

REPORT INFORMATION
  Report Type: 
  Country: None (occurrence: None)
  Receive Date: 20120227
  Receipt Date: 20120123
  Transmission Date: 20120608
  Serious: No
  Sender: FDA-Public Use
  Company Number: US-MYLANLABS-2011S1026104

PATIENT
  Age: 16 Year
  Sex: Female

DRUGS (7)
  1. AMNESTEEM [Suspect]
     Indication: ACNE
     Route: 048
     Dates: start: 20110801, end: 20111201
  2. IBUPROFEN (ADVIL) [Concomitant]
  3. VITAMIN E [Concomitant]
  4. VITAMIN E [Concomitant]
  5. AMNESTEEM [Suspect]
     Route: 048
     Dates: start: 20110801, end: 20111201
  6. CONTRACEPTIVE [Concomitant]
  7. CLARITIN /00413701/ [Concomitant]

REACTIONS (5)
  - DRUG INEFFECTIVE [None]
  - BACK PAIN [None]
  - MOOD ALTERED [None]
  - ACNE [None]
  - DEPRESSION [None]
